FAERS Safety Report 12537712 (Version 1)
Quarter: 2016Q3

REPORT INFORMATION
  Report Type: Spontaneous
  Country: KR (occurrence: KR)
  Receive Date: 20160707
  Receipt Date: 20160707
  Transmission Date: 20161109
  Serious: Yes (Hospitalization, Other)
  Sender: FDA-Public Use
  Company Number: KR-MYLANLABS-2016M1028187

PATIENT

DRUGS (8)
  1. EPHEDRINE. [Concomitant]
     Active Substance: EPHEDRINE
     Dosage: 10 MG
     Route: 065
  2. LIDOCAINE. [Suspect]
     Active Substance: LIDOCAINE
     Indication: INDUCTION OF ANAESTHESIA
     Dosage: 15 ML OF 2% INJECTION
     Route: 008
  3. PHENYLEPHRINE [Concomitant]
     Active Substance: PHENYLEPHRINE\PHENYLEPHRINE HYDROCHLORIDE
     Dosage: 40 MICROG
     Route: 065
  4. LIDOCAINE. [Suspect]
     Active Substance: LIDOCAINE
     Dosage: 5 ML OF 2% INJECTION
     Route: 008
  5. EPHEDRINE. [Concomitant]
     Active Substance: EPHEDRINE
     Dosage: 5 MG
     Route: 065
  6. LEVOBUPIVACAINE [Suspect]
     Active Substance: LEVOBUPIVACAINE
     Indication: INDUCTION OF ANAESTHESIA
     Dosage: 15 ML OF 0.75% INJECTION
     Route: 008
  7. LEVOBUPIVACAINE [Suspect]
     Active Substance: LEVOBUPIVACAINE
     Dosage: 5 ML OF 0.75% INJECTION
     Route: 008
  8. OXYTOCIN. [Concomitant]
     Active Substance: OXYTOCIN
     Route: 065

REACTIONS (2)
  - Myoclonus [Recovered/Resolved]
  - Maternal exposure during delivery [Recovered/Resolved]
